FAERS Safety Report 4979788-7 (Version None)
Quarter: 2006Q2

REPORT INFORMATION
  Report Type: 
  Country: None (occurrence: None)
  Receive Date: 20060421
  Receipt Date: 20060322
  Transmission Date: 20061013
  Serious: Yes (Other)
  Sender: FDA-Public Use
  Company Number: DK-ABBOTT-06P-044-0328790-00

PATIENT
  Sex: Male
  Weight: 15 kg

DRUGS (5)
  1. SEVORANE LIQUID FOR INHALATION [Suspect]
     Indication: ANAESTHESIA
     Route: 055
  2. BUDESONIDE [Concomitant]
     Indication: ASTHMA
     Dosage: ADM IN EACH NOSTRIL
     Route: 055
     Dates: start: 20030918
  3. BUDESONIDE [Concomitant]
     Indication: RHINITIS
  4. CLAVULIN [Concomitant]
     Indication: OTITIS MEDIA
     Dates: start: 20060309, end: 20060316
  5. OXYGEN [Concomitant]
     Indication: ANAESTHESIA
     Route: 055
     Dates: start: 20060313, end: 20060313

REACTIONS (3)
  - HYPERSENSITIVITY [None]
  - RASH MORBILLIFORM [None]
  - VOMITING [None]
